FAERS Safety Report 6193798-6 (Version None)
Quarter: 2009Q2

REPORT INFORMATION
  Report Type: 
  Country: None (occurrence: None)
  Receive Date: 20090518
  Receipt Date: 20090506
  Transmission Date: 20091009
  Serious: Yes (Hospitalization)
  Sender: FDA-Public Use
  Company Number: DE-BAYER-200920216GPV

PATIENT
  Age: 71 Year
  Sex: Female
  Weight: 103 kg

DRUGS (6)
  1. ASPIRIN [Suspect]
     Indication: CORONARY ARTERY DISEASE
     Route: 048
     Dates: start: 20070601
  2. FALITHROM [Suspect]
     Indication: AORTIC VALVE REPLACEMENT
     Dosage: 6 TIMES /WEEK
     Route: 048
     Dates: start: 20071101, end: 20081012
  3. BISOPROLOL [Concomitant]
     Indication: CORONARY ARTERY DISEASE
     Route: 048
     Dates: start: 20070601
  4. EZETROL [Concomitant]
     Indication: HYPERLIPIDAEMIA
     Route: 048
     Dates: start: 20070101
  5. RAMIPRIL [Concomitant]
     Indication: HYPERTENSION
     Route: 048
     Dates: start: 20000101
  6. SIMVAHEXAL [Concomitant]
     Indication: HYPERLIPIDAEMIA
     Route: 048
     Dates: start: 20070101

REACTIONS (2)
  - EPISTAXIS [None]
  - HYPERTENSIVE CRISIS [None]
